FAERS Safety Report 13829897 (Version 3)
Quarter: 2018Q3

REPORT INFORMATION
  Report Type: Spontaneous
  Country: CN (occurrence: CN)
  Receive Date: 20170803
  Receipt Date: 20180701
  Transmission Date: 20181010
  Serious: Yes (Hospitalization)
  Sender: FDA-Public Use
  Company Number: CN-SUN PHARMACEUTICAL INDUSTRIES LTD-2016R1-118618

PATIENT
  Age: 52 Year
  Sex: Male

DRUGS (3)
  1. EPIRUBICIN [Concomitant]
     Active Substance: EPIRUBICIN
     Indication: INTRADUCTAL PROLIFERATIVE BREAST LESION
     Dosage: (60 MG, DAY 1 AND DAY 2, INFUSION)
     Route: 042
  2. CYCLOPHOSPHAMIDE. [Concomitant]
     Active Substance: CYCLOPHOSPHAMIDE
     Indication: INTRADUCTAL PROLIFERATIVE BREAST LESION
     Dosage: (800 MG, DAY 1, INFUSION)
     Route: 042
  3. DOCETAXEL. [Suspect]
     Active Substance: DOCETAXEL
     Indication: INTRADUCTAL PROLIFERATIVE BREAST LESION
     Dosage: 100 MG/M^2 (DAY 1, INFUSION)
     Route: 042

REACTIONS (1)
  - Scleroderma [Not Recovered/Not Resolved]
